FAERS Safety Report 4377179-3 (Version None)
Quarter: 2004Q2

REPORT INFORMATION
  Report Type: 
  Country: None (occurrence: None)
  Receive Date: 20040614
  Receipt Date: 20040614
  Transmission Date: 20050107
  Serious: Yes (Hospitalization)
  Sender: FDA-Public Use
  Company Number: None

PATIENT
  Age: 61 Year
  Sex: Male
  Weight: 47 kg

DRUGS (10)
  1. CEFEPIME 2 GRAM [Suspect]
     Dosage: 2 GRAMS Q12H INTRAVENOUS
     Route: 042
     Dates: start: 20040422, end: 20040510
  2. THIAMINE [Concomitant]
  3. FOLIC ACID [Concomitant]
  4. NEURONTIN [Concomitant]
  5. EFFEXOR [Concomitant]
  6. AMBIEN [Concomitant]
  7. ENALAPRIL MALEATE [Concomitant]
  8. HEPARIN [Concomitant]
  9. ZANTAC [Concomitant]
  10. LASIX [Concomitant]

REACTIONS (3)
  - EOSINOPHIL COUNT INCREASED [None]
  - PYREXIA [None]
  - WHITE BLOOD CELL COUNT DECREASED [None]
